FAERS Safety Report 4848365-0 (Version None)
Quarter: 2005Q4

REPORT INFORMATION
  Report Type: 
  Country: None (occurrence: None)
  Receive Date: 20051208
  Receipt Date: 20051130
  Transmission Date: 20060501
  Serious: Yes (Other)
  Sender: FDA-Public Use
  Company Number: AU-ROCHE-426676

PATIENT
  Age: 22 Year
  Sex: Female

DRUGS (2)
  1. CEFTRIAXONE SODIUM [Suspect]
     Route: 042
     Dates: start: 20030809, end: 20030809
  2. DOXYCYCLINE HYDROCHLORIDE [Suspect]
     Route: 048
     Dates: start: 20030809, end: 20030809

REACTIONS (10)
  - BURNING SENSATION [None]
  - CHEST DISCOMFORT [None]
  - CIRCUMORAL OEDEMA [None]
  - DYSPNOEA [None]
  - GENERALISED ERYTHEMA [None]
  - HYPERTENSION [None]
  - PRURITUS [None]
  - SWELLING FACE [None]
  - TACHYCARDIA [None]
  - WHEEZING [None]
